FAERS Safety Report 17914917 (Version 2)
Quarter: 2020Q3

REPORT INFORMATION
  Report Type: Spontaneous
  Country: US (occurrence: US)
  Receive Date: 20200618
  Receipt Date: 20200709
  Transmission Date: 20201103
  Serious: Yes (Death, Hospitalization)
  Sender: FDA-Public Use
  Company Number: US-ACTELION-A-NJ2020-206189

PATIENT
  Age: 31 Year
  Sex: Female
  Weight: 52.61 kg

DRUGS (8)
  1. OPSUMIT [Suspect]
     Active Substance: MACITENTAN
     Indication: PULMONARY ARTERIAL HYPERTENSION
     Dosage: 10 MG, QD
     Route: 048
  2. REMODULIN [Concomitant]
     Active Substance: TREPROSTINIL
     Dosage: 96 NG/KG, PER MIN
     Dates: end: 20200608
  3. SILDENAFIL CITRATE. [Concomitant]
     Active Substance: SILDENAFIL CITRATE
     Dosage: 20 MG, TID
     Route: 048
     Dates: start: 2012, end: 20200608
  4. DIGOXIN. [Concomitant]
     Active Substance: DIGOXIN
     Dosage: 0.125 MG, 5 DAYS A WEEK
     Route: 048
     Dates: start: 2012, end: 20200608
  5. FUROSEMIDE. [Concomitant]
     Active Substance: FUROSEMIDE
     Dosage: 20 MG, QD
     Route: 048
     Dates: start: 2019, end: 20200608
  6. FERRUM [FERROUS FUMARATE] [Concomitant]
     Dosage: 1.5/30 UNK, QD
     Route: 048
     Dates: start: 2019, end: 20200608
  7. SPIRONOLACTONE. [Concomitant]
     Active Substance: SPIRONOLACTONE
     Dosage: 25 MG, QD
     Route: 048
     Dates: end: 20200608
  8. LEVOTHYROXINE. [Concomitant]
     Active Substance: LEVOTHYROXINE
     Dosage: 25 MCG, QD
     Route: 048
     Dates: start: 2019, end: 20200608

REACTIONS (5)
  - Atrial septal defect repair [Unknown]
  - Pulseless electrical activity [Fatal]
  - Brain injury [Unknown]
  - Brain death [Unknown]
  - Cardiac arrest [Fatal]

NARRATIVE: CASE EVENT DATE: 20200608
